FAERS Safety Report 8772997 (Version 2)
Quarter: 2012Q4

REPORT INFORMATION
  Report Type: 
  Country: AU (occurrence: AU)
  Receive Date: 20120907
  Receipt Date: 20121004
  Transmission Date: 20130627
  Serious: Yes (Other)
  Sender: FDA-Public Use
  Company Number: AU-PFIZER INC-2012220517

PATIENT
  Age: 72 Year
  Sex: Female

DRUGS (1)
  1. VARENICLINE TARTRATE [Suspect]
     Indication: TOBACCO USER
     Dosage: 2 mg, 1x/day

REACTIONS (2)
  - Hyperglycaemia [Unknown]
  - Upper respiratory tract infection [Recovered/Resolved]
